FAERS Safety Report 17147054 (Version 2)
Quarter: 2019Q4

REPORT INFORMATION
  Report Type: Spontaneous
  Country: JP (occurrence: JP)
  Receive Date: 20191212
  Receipt Date: 20191224
  Transmission Date: 20200122
  Serious: Yes (Other)
  Sender: FDA-Public Use
  Company Number: JP-009507513-1912JPN000964J

PATIENT
  Age: 8 Decade
  Sex: Male

DRUGS (1)
  1. TIENAM FOR INTRAVENOUS DRIP INFUSION 0.5G [Suspect]
     Active Substance: CILASTATIN SODIUM\IMIPENEM
     Indication: URINARY TRACT INFECTION
     Dosage: 0.5 GRAM, BID
     Route: 041

REACTIONS (7)
  - Pyrexia [Unknown]
  - Dehydration [Unknown]
  - Disseminated intravascular coagulation [Recovering/Resolving]
  - Blood pressure decreased [Recovered/Resolved]
  - Urine output decreased [Recovered/Resolved]
  - Endotoxaemia [Unknown]
  - Haematuria [Recovering/Resolving]
